FAERS Safety Report 6287225-8 (Version None)
Quarter: 2009Q3

REPORT INFORMATION
  Report Type: 
  Country: None (occurrence: None)
  Receive Date: 20090716
  Receipt Date: 20081208
  Transmission Date: 20100115
  Serious: Yes (Other)
  Sender: FDA-Public Use
  Company Number: 2008BI032990

PATIENT
  Sex: Female

DRUGS (1)
  1. AVONEX [Suspect]

REACTIONS (5)
  - CHEST DISCOMFORT [None]
  - CONVULSION [None]
  - MULTIPLE SCLEROSIS [None]
  - MULTIPLE SCLEROSIS RELAPSE [None]
  - PYREXIA [None]
